FAERS Safety Report 9841190 (Version 1)
Quarter: 2014Q1

REPORT INFORMATION
  Report Type: Spontaneous
  Country: US (occurrence: US)
  Receive Date: 20140124
  Receipt Date: 20140124
  Transmission Date: 20141002
  Serious: Yes (Other)
  Sender: FDA-Public Use
  Company Number: US-PFIZER INC-2014017638

PATIENT
  Age: 72 Year
  Sex: Female

DRUGS (4)
  1. CLEOCIN [Suspect]
     Dosage: UNK
  2. CECLOR [Suspect]
     Dosage: UNK
  3. MACROBID [Suspect]
     Dosage: UNK
  4. BACTRIM [Suspect]
     Dosage: UNK

REACTIONS (2)
  - Gastric haemorrhage [Unknown]
  - Drug hypersensitivity [Unknown]
